FAERS Safety Report 24080414 (Version 1)
Quarter: 2024Q3

REPORT INFORMATION
  Report Type: Spontaneous
  Country: CA (occurrence: CA)
  Receive Date: 20240711
  Receipt Date: 20240711
  Transmission Date: 20241016
  Serious: Yes (Life-Threatening, Hospitalization, Other)
  Sender: FRESENIUS KABI
  Company Number: CA-FreseniusKabi-FK202410778

PATIENT
  Age: 5 Year
  Sex: Female

DRUGS (2)
  1. ETOPOSIDE [Suspect]
     Active Substance: ETOPOSIDE
     Indication: Nephroblastoma
     Dosage: FORM OF ADMIN: LIQUID INTRAVENOUS
     Route: 042
  2. CYCLOPHOSPHAMIDE [Suspect]
     Active Substance: CYCLOPHOSPHAMIDE
     Indication: Nephroblastoma
     Dosage: FOA: POWDER FOR SOLUTION INTRAVENOUS
     Route: 042

REACTIONS (3)
  - Coagulation test abnormal [Recovered/Resolved]
  - Pyrexia [Recovered/Resolved]
  - Electrolyte imbalance [Recovered/Resolved]
